FAERS Safety Report 21999848 (Version 20)
Quarter: 2025Q2

REPORT INFORMATION
  Report Type: Report from Study
  Country: CO (occurrence: CO)
  Receive Date: 20230216
  Receipt Date: 20250430
  Transmission Date: 20250716
  Serious: Yes (Hospitalization, Other)
  Sender: NOVARTIS
  Company Number: CO-002147023-NVSC2023CO032227

PATIENT
  Sex: Female
  Weight: 53 kg

DRUGS (3)
  1. COSENTYX [Suspect]
     Active Substance: SECUKINUMAB
     Indication: Ankylosing spondylitis
     Dosage: 150 MG, QMO
     Route: 058
  2. COSENTYX [Suspect]
     Active Substance: SECUKINUMAB
     Dosage: 300 MG, QMO
     Route: 058
     Dates: start: 20220201
  3. COSENTYX [Suspect]
     Active Substance: SECUKINUMAB
     Route: 065
     Dates: start: 20250327

REACTIONS (7)
  - Ankylosing spondylitis [Unknown]
  - Lupus-like syndrome [Not Recovered/Not Resolved]
  - Skin disorder [Unknown]
  - Gallbladder disorder [Unknown]
  - Visual impairment [Unknown]
  - Illness [Unknown]
  - Malaise [Unknown]
